FAERS Safety Report 15160190 (Version 2)
Quarter: 2018Q3

REPORT INFORMATION
  Report Type: Spontaneous
  Country: PT (occurrence: PT)
  Receive Date: 20180718
  Receipt Date: 20180919
  Transmission Date: 20181010
  Serious: Yes (Life-Threatening, Disabling, Other)
  Sender: FDA-Public Use
  Company Number: PT-PFIZER INC-2018288191

PATIENT
  Age: 80 Year
  Sex: Female

DRUGS (2)
  1. TERIPARATIDA [Concomitant]
     Dosage: UNK
     Route: 058
  2. PREGABALIN. [Suspect]
     Active Substance: PREGABALIN
     Indication: NEURALGIA
     Dosage: 200 MG, 2X/DAY (12/12H)
     Route: 048
     Dates: start: 20180523, end: 20180609

REACTIONS (4)
  - Sciatica [Unknown]
  - Headache [Recovered/Resolved]
  - Depression [Unknown]
  - Respiratory disorder [Recovered/Resolved]
